FAERS Safety Report 10501570 (Version 1)
Quarter: 2014Q4

REPORT INFORMATION
  Report Type: Spontaneous
  Country: US (occurrence: None)
  Receive Date: 20141006
  Receipt Date: 20141006
  Transmission Date: 20150528
  Serious: No
  Sender: FDA-Public Use
  Company Number: None

PATIENT
  Age: 65 Year
  Sex: Male
  Weight: 75.9 kg

DRUGS (2)
  1. GLYBURIDE. [Suspect]
     Active Substance: GLYBURIDE
     Indication: ACUTE KIDNEY INJURY
     Route: 048
     Dates: start: 20110706, end: 20140705
  2. GLYBURIDE. [Suspect]
     Active Substance: GLYBURIDE
     Indication: DIABETES MELLITUS
     Route: 048
     Dates: start: 20110706, end: 20140705

REACTIONS (2)
  - Hypoglycaemia [None]
  - Acute kidney injury [None]

NARRATIVE: CASE EVENT DATE: 20140705
